FAERS Safety Report 6287572-X (Version None)
Quarter: 2009Q3

REPORT INFORMATION
  Report Type: 
  Country: None (occurrence: None)
  Receive Date: 20090727
  Receipt Date: 20090723
  Transmission Date: 20100115
  Serious: Yes (Hospitalization)
  Sender: FDA-Public Use
  Company Number: 1000006860

PATIENT
  Age: 26 Year
  Sex: Female

DRUGS (12)
  1. CELEXA [Suspect]
     Indication: DEPRESSION
     Dosage: 40 MG (20 MG, 2 IN 1 D), ORAL
     Route: 048
     Dates: start: 20090501, end: 20090501
  2. REBIF [Suspect]
     Indication: MULTIPLE SCLEROSIS
     Dosage: 44 MCG (44 MCG, 3 IN 1 WK), SUBCUTANEOUS
     Route: 058
     Dates: start: 20081001
  3. NEURONTIN [Suspect]
     Indication: PAIN PROPHYLAXIS
     Dosage: ORAL
     Route: 048
     Dates: start: 20090301, end: 20090501
  4. REMERON [Concomitant]
  5. DIAZEPAM [Concomitant]
  6. PHENERGAN [Concomitant]
  7. LORTAB [Concomitant]
  8. AMITRIPTYLINE HCL [Concomitant]
  9. CORTICOSTEROIDS [Concomitant]
  10. TRAMADOL [Concomitant]
  11. METHOCARBAMOL [Concomitant]
  12. IBUPROFEN [Concomitant]

REACTIONS (8)
  - FEELING HOT [None]
  - FLATULENCE [None]
  - FLUSHING [None]
  - GASTROINTESTINAL DISORDER [None]
  - GASTROINTESTINAL OEDEMA [None]
  - HYPERHIDROSIS [None]
  - INTESTINAL DILATATION [None]
  - OVARIAN CYST [None]
